FAERS Safety Report 7793657-9 (Version None)
Quarter: 2011Q4

REPORT INFORMATION
  Report Type: 
  Country: None (occurrence: None)
  Receive Date: 20111003
  Receipt Date: 20110921
  Transmission Date: 20120403
  Serious: Yes (Hospitalization, Other)
  Sender: FDA-Public Use
  Company Number: US-SANOFI-AVENTIS-2011SA049599

PATIENT
  Age: 80 Year
  Sex: Male

DRUGS (6)
  1. OPTICLICK [Suspect]
     Indication: TYPE 2 DIABETES MELLITUS
  2. SOLOSTAR [Suspect]
     Indication: TYPE 2 DIABETES MELLITUS
     Dates: start: 20110101
  3. ORAL ANTIDIABETICS [Concomitant]
     Dates: end: 20110101
  4. LANTUS [Suspect]
     Indication: TYPE 2 DIABETES MELLITUS
     Dosage: DOSE:30 UNIT(S)
     Route: 058
  5. LANTUS [Suspect]
     Dosage: DOSE:30 UNIT(S)
     Route: 058
     Dates: start: 20110530, end: 20110731
  6. LANTUS [Suspect]
     Dosage: DOSE:30 UNIT(S)
     Route: 058
     Dates: start: 20110101

REACTIONS (8)
  - LACERATION [None]
  - BLOOD GLUCOSE INCREASED [None]
  - CARDIAC PACEMAKER INSERTION [None]
  - CARDIAC FAILURE CONGESTIVE [None]
  - PRODUCT QUALITY ISSUE [None]
  - RENAL IMPAIRMENT [None]
  - SYNCOPE [None]
  - FALL [None]
